FAERS Safety Report 7133862-8 (Version None)
Quarter: 2010Q4

REPORT INFORMATION
  Report Type: 
  Country: None (occurrence: None)
  Receive Date: 20101203
  Receipt Date: 20100416
  Transmission Date: 20110411
  Serious: Yes (Death, Life-Threatening, Hospitalization, Other)
  Sender: FDA-Public Use
  Company Number: US-RANBAXY-2010US-36058

PATIENT

DRUGS (14)
  1. GANCICLOVIR [Suspect]
     Indication: ANTIVIRAL PROPHYLAXIS
     Dosage: 500 MG, TID
     Route: 048
     Dates: start: 20070723, end: 20071029
  2. MARIBAVIR (PLACEBO) [Suspect]
     Indication: ANTIVIRAL PROPHYLAXIS
     Dosage: 100 MG, BID
     Route: 048
     Dates: start: 20070723, end: 20071029
  3. ACYCLOVIR SODIUM [Suspect]
     Indication: ANTIVIRAL PROPHYLAXIS
     Dosage: 400.000000 MG, BID
     Route: 048
     Dates: start: 20070723, end: 20071029
  4. CELLCEPT [Suspect]
     Indication: TRANSPLANT REJECTION
     Dosage: UNK
     Route: 065
     Dates: end: 20071107
  5. PROGRAF [Suspect]
     Indication: TRANSPLANT REJECTION
     Route: 065
     Dates: end: 20071113
  6. MAGNESIUM OXIDE [Concomitant]
     Indication: MINERAL SUPPLEMENTATION
     Route: 065
  7. BACTRIM [Concomitant]
     Indication: ANTIFUNGAL PROPHYLAXIS
     Route: 065
  8. TOPROL-XL [Concomitant]
     Indication: HYPERTENSION
     Route: 065
  9. CYCLOSPORINE [Concomitant]
     Indication: PROPHYLAXIS AGAINST TRANSPLANT REJECTION
     Route: 065
  10. PREDNISONE [Concomitant]
     Indication: PROPHYLAXIS AGAINST TRANSPLANT REJECTION
     Route: 065
  11. SIROLIMUS [Concomitant]
     Indication: PROPHYLAXIS AGAINST TRANSPLANT REJECTION
     Route: 065
  12. NYSTATIN [Concomitant]
     Indication: PROPHYLAXIS
     Route: 065
  13. PREVACID [Concomitant]
     Indication: PROPHYLAXIS
     Route: 065
  14. GLIPIZIDE [Concomitant]
     Indication: HYPERGLYCAEMIA
     Route: 065

REACTIONS (5)
  - ARRHYTHMIA [None]
  - CYTOMEGALOVIRUS INFECTION [None]
  - DRUG INEFFECTIVE [None]
  - HAEMOLYTIC URAEMIC SYNDROME [None]
  - PNEUMONIA CYTOMEGALOVIRAL [None]
